FAERS Safety Report 5933502-7 (Version None)
Quarter: 2008Q4

REPORT INFORMATION
  Report Type: 
  Country: None (occurrence: None)
  Receive Date: 20081029
  Receipt Date: 20081021
  Transmission Date: 20090506
  Serious: Yes (Hospitalization)
  Sender: FDA-Public Use
  Company Number: GB-RANBAXY-2008RR-18459

PATIENT
  Age: 56 Year
  Sex: Male

DRUGS (12)
  1. ACETAMINOPHEN [Suspect]
     Indication: DRUG USE FOR UNKNOWN INDICATION
     Dosage: 1 G, QID
     Route: 048
  2. FENTANYL [Suspect]
     Indication: PAIN
     Dosage: UNK MG, TID
     Route: 048
  3. GABAPENTIN [Suspect]
     Indication: DRUG USE FOR UNKNOWN INDICATION
     Dosage: 300 MG, TID
     Route: 048
  4. HALOPERIDOL [Suspect]
     Indication: DRUG USE FOR UNKNOWN INDICATION
     Route: 065
  5. HYDROMORPHONE HCL [Suspect]
     Indication: ANALGESIA
     Dosage: 25 MG, QD
     Route: 042
  6. HYDROMORPHONE HCL [Suspect]
     Dosage: 24 MG, QD
     Route: 058
  7. HYDROMORPHONE HCL [Suspect]
     Indication: DRUG ABUSE
     Dosage: 1 MG, UNK
     Route: 058
  8. MORPHINE SULFATE INJ [Suspect]
     Indication: ANALGESIA
     Route: 065
  9. OXYCONTIN [Suspect]
     Indication: ANALGESIA
     Dosage: 80 MG, BID
     Route: 065
  10. ALFENTANIL [Concomitant]
     Indication: DRUG ABUSE
     Dosage: 15 MG, UNK
     Route: 058
  11. ALFENTANIL [Concomitant]
     Dosage: 50 MG, UNK
     Route: 058
  12. ALFENTANIL [Concomitant]
     Dosage: 9 MG, UNK
     Route: 058

REACTIONS (20)
  - ABDOMINAL PAIN [None]
  - AGGRESSION [None]
  - AGITATION [None]
  - BACK PAIN [None]
  - CONDITION AGGRAVATED [None]
  - DRUG EFFECT DECREASED [None]
  - DRUG INEFFECTIVE [None]
  - DRUG TOXICITY [None]
  - DRUG WITHDRAWAL SYNDROME [None]
  - FEELING ABNORMAL [None]
  - HYPERHIDROSIS [None]
  - HYPERVENTILATION [None]
  - INFECTION [None]
  - MYALGIA [None]
  - PILOERECTION [None]
  - RENAL IMPAIRMENT [None]
  - RESTLESSNESS [None]
  - SLEEP DISORDER [None]
  - TACHYCARDIA [None]
  - THERAPEUTIC AGENT TOXICITY [None]
